FAERS Safety Report 23282564 (Version 1)
Quarter: 2023Q4

REPORT INFORMATION
  Report Type: Spontaneous
  Country: US (occurrence: None)
  Receive Date: 20231208
  Receipt Date: 20231208
  Transmission Date: 20240110
  Serious: Yes (Other)
  Sender: FDA-Public Use
  Company Number: None

PATIENT
  Age: 54 Year
  Sex: Female
  Weight: 72 kg

DRUGS (2)
  1. ZICAM COLD REMEDY ULTRA RAPIDMELTS (ZINC ACETATE\ZINC GLUCONATE) (ZINC [Suspect]
     Active Substance: ZINC ACETATE\ZINC GLUCONATE
     Indication: Nasopharyngitis
     Dosage: OTHER FREQUENCY : AS NEEDED;?
     Route: 048
     Dates: start: 20231208, end: 20231208
  2. DUPIXENT [Concomitant]
     Active Substance: DUPILUMAB

REACTIONS (3)
  - Nausea [None]
  - Vomiting [None]
  - Confusional state [None]

NARRATIVE: CASE EVENT DATE: 20231208
